FAERS Safety Report 9306906 (Version 2)
Quarter: 2013Q2

REPORT INFORMATION
  Report Type: Spontaneous
  Country: FR (occurrence: FR)
  Receive Date: 20130523
  Receipt Date: 20130614
  Transmission Date: 20140414
  Serious: Yes (Other)
  Sender: FDA-Public Use
  Company Number: FR-ABBOTT-13P-056-1092840-00

PATIENT
  Age: 60 Year
  Sex: Female
  Weight: 75 kg

DRUGS (6)
  1. HUMIRA [Suspect]
     Indication: RHEUMATOID ARTHRITIS
     Dates: start: 201006, end: 201101
  2. HUMIRA [Suspect]
     Dosage: DURATION: AROUND 2 YEARS
     Route: 058
     Dates: start: 201101, end: 201112
  3. IMETH [Concomitant]
     Indication: RHEUMATOID ARTHRITIS
     Dosage: 10 MG TO 15 MG
     Dates: start: 2005
  4. DOLIPRANE [Concomitant]
     Indication: PRODUCT USED FOR UNKNOWN INDICATION
  5. SPECIAFOLDINE [Concomitant]
     Indication: PRODUCT USED FOR UNKNOWN INDICATION
  6. CELEBREX [Concomitant]
     Indication: PRODUCT USED FOR UNKNOWN INDICATION

REACTIONS (11)
  - Meningioma [Unknown]
  - Pulmonary embolism [Unknown]
  - Intracranial pressure increased [Unknown]
  - Post procedural complication [Unknown]
  - Cognitive disorder [Unknown]
  - Hemiparesis [Unknown]
  - Pneumonia bacterial [Unknown]
  - Visual acuity reduced [Unknown]
  - Bronchitis [Unknown]
  - Oropharyngeal pain [Unknown]
  - Off label use [Unknown]
